FAERS Safety Report 24388003 (Version 1)
Quarter: 2024Q4

REPORT INFORMATION
  Report Type: Spontaneous
  Country: US (occurrence: US)
  Receive Date: 20241002
  Receipt Date: 20241002
  Transmission Date: 20250115
  Serious: No
  Sender: BAYER
  Company Number: US-BAYER-2024A138662

PATIENT
  Age: 77 Year
  Sex: Male

DRUGS (2)
  1. NUBEQA [Suspect]
     Active Substance: DAROLUTAMIDE
     Dosage: UNK (TAKE IT FOR 3 AND A HALF WEEKS AND GET OFF OF IT FOR FOUR WEEKS)
     Route: 048
  2. NUBEQA [Suspect]
     Active Substance: DAROLUTAMIDE
     Dosage: UNK
     Route: 048
     Dates: start: 20240923, end: 20240926

REACTIONS (3)
  - Abdominal pain upper [None]
  - Nausea [None]
  - Headache [None]

NARRATIVE: CASE EVENT DATE: 20240925
